FAERS Safety Report 7946426-0 (Version None)
Quarter: 2011Q4

REPORT INFORMATION
  Report Type: 
  Country: None (occurrence: None)
  Receive Date: 20111129
  Receipt Date: 20111118
  Transmission Date: 20120403
  Serious: Yes (Hospitalization)
  Sender: FDA-Public Use
  Company Number: US-BAYER-201037304NA

PATIENT
  Age: 37 Year
  Sex: Female
  Weight: 75 kg

DRUGS (8)
  1. WELLBUTRIN [Concomitant]
     Indication: DEPRESSION
     Dosage: 150 MG, QD
     Dates: start: 20090101
  2. IBUPROFEN [Concomitant]
  3. YAZ [Suspect]
     Indication: CONTRACEPTION
     Dosage: UNK
     Route: 048
     Dates: start: 19930101
  4. PRISTIQ [Concomitant]
     Indication: DEPRESSION
     Dosage: 100 MG, QD
     Dates: start: 20090101
  5. DEPAKOTE [Concomitant]
     Dosage: 500 MG, HS
  6. LEVOTHYROXINE SODIUM [Concomitant]
     Indication: THYROID DISORDER
     Dosage: UNK
     Dates: start: 20050101
  7. SEROQUEL [Concomitant]
     Indication: BIPOLAR DISORDER
     Dosage: 50 MG, HS
     Dates: start: 20090101
  8. ACETAMINOPHEN [Concomitant]

REACTIONS (7)
  - CHOLECYSTITIS ACUTE [None]
  - ANXIETY [None]
  - NAUSEA [None]
  - DEPRESSION [None]
  - ABDOMINAL PAIN UPPER [None]
  - STRESS [None]
  - DIARRHOEA [None]
